FAERS Safety Report 22206561 (Version 2)
Quarter: 2023Q2

REPORT INFORMATION
  Report Type: Report from Study
  Country: US (occurrence: US)
  Receive Date: 20230413
  Receipt Date: 20230418
  Transmission Date: 20230721
  Serious: Yes (Life-Threatening, Hospitalization, Other)
  Sender: FDA-Public Use
  Company Number: US-SUN PHARMACEUTICAL INDUSTRIES LTD-2023R1-381405

PATIENT
  Age: 52 Year
  Sex: Male

DRUGS (1)
  1. CLOZAPINE [Suspect]
     Active Substance: CLOZAPINE
     Indication: Schizoaffective disorder bipolar type
     Dosage: UNK, BID
     Route: 065
     Dates: start: 20221116, end: 20230222

REACTIONS (3)
  - Neutropenia [Unknown]
  - Gastroenteritis [Unknown]
  - Sepsis [Unknown]

NARRATIVE: CASE EVENT DATE: 20230222
